FAERS Safety Report 5802292-0 (Version None)
Quarter: 2008Q3

REPORT INFORMATION
  Report Type: 
  Country: None (occurrence: None)
  Receive Date: 20080707
  Receipt Date: 20080626
  Transmission Date: 20090109
  Serious: Yes (Hospitalization)
  Sender: FDA-Public Use
  Company Number: DE-PFIZER INC-2008048726

PATIENT
  Sex: Female
  Weight: 64 kg

DRUGS (1)
  1. EXUBERA [Suspect]
     Indication: TYPE 2 DIABETES MELLITUS
     Route: 055
     Dates: start: 20070813, end: 20080421

REACTIONS (2)
  - CORONARY ARTERY DISEASE [None]
  - PANIC ATTACK [None]
